FAERS Safety Report 11389778 (Version 1)
Quarter: 2015Q3

REPORT INFORMATION
  Report Type: Report from Study
  Country: US (occurrence: US)
  Receive Date: 20150817
  Receipt Date: 20150817
  Transmission Date: 20151125
  Serious: Yes (Other)
  Sender: FDA-Public Use
  Company Number: US-AMGEN-USASP2015082484

PATIENT
  Age: 68 Year
  Sex: Female

DRUGS (1)
  1. ENBREL [Suspect]
     Active Substance: ETANERCEPT
     Indication: PSORIASIS
     Dosage: 50 MG, QWK
     Route: 065

REACTIONS (16)
  - Somnolence [Unknown]
  - Abdominal discomfort [Unknown]
  - Sciatica [Unknown]
  - Depression [Unknown]
  - Pain [Unknown]
  - Anxiety [Unknown]
  - Pain in extremity [Unknown]
  - Mood swings [Unknown]
  - Muscle spasms [Unknown]
  - Myalgia [Unknown]
  - Back pain [Unknown]
  - Spinal pain [Unknown]
  - Diabetes mellitus [Unknown]
  - Gastrooesophageal reflux disease [Unknown]
  - Drug effect decreased [Unknown]
  - Feeling abnormal [Unknown]
